FAERS Safety Report 4355071-8 (Version None)
Quarter: 2004Q2

REPORT INFORMATION
  Report Type: 
  Country: None (occurrence: None)
  Receive Date: 20040504
  Receipt Date: 20040421
  Transmission Date: 20050107
  Serious: Yes (Hospitalization)
  Sender: FDA-Public Use
  Company Number: HQWYE571722APR04

PATIENT
  Sex: Male

DRUGS (4)
  1. EFFEXOR XR [Suspect]
     Indication: DEPRESSION
     Dosage: SEE IMAGE ORAL
     Route: 048
     Dates: start: 20040201, end: 20040101
  2. EFFEXOR XR [Suspect]
     Indication: DEPRESSION
     Dosage: SEE IMAGE ORAL
     Route: 048
     Dates: start: 20040201, end: 20040201
  3. LEXAPRO [Suspect]
     Indication: DEPRESSION
     Dates: start: 20040101, end: 20040101
  4. BUSPAR [Concomitant]

REACTIONS (9)
  - DRUG INEFFECTIVE [None]
  - FAECAL INCONTINENCE [None]
  - HEPATOTOXICITY [None]
  - NAUSEA [None]
  - OEDEMA PERIPHERAL [None]
  - RASH [None]
  - STOMACH DISCOMFORT [None]
  - SUNBURN [None]
  - URINARY INCONTINENCE [None]
